FAERS Safety Report 7445896-4 (Version None)
Quarter: 2011Q2

REPORT INFORMATION
  Report Type: 
  Country: None (occurrence: None)
  Receive Date: 20110429
  Receipt Date: 20100722
  Transmission Date: 20111010
  Serious: No
  Sender: FDA-Public Use
  Company Number: US-ASTRAZENECA-2010SE30303

PATIENT
  Sex: Female

DRUGS (3)
  1. OMEPRAZOLE [Suspect]
     Route: 048
     Dates: start: 20100401
  2. NEXIUM [Suspect]
     Route: 048
     Dates: start: 20091101
  3. NEXIUM [Suspect]
     Route: 048
     Dates: end: 20091101

REACTIONS (4)
  - FEELING ABNORMAL [None]
  - OESOPHAGEAL ULCER [None]
  - DRUG INEFFECTIVE [None]
  - DRUG DOSE OMISSION [None]
